FAERS Safety Report 5963106-1 (Version None)
Quarter: 2008Q4

REPORT INFORMATION
  Report Type: 
  Country: None (occurrence: None)
  Receive Date: 20081124
  Receipt Date: 20081112
  Transmission Date: 20090506
  Serious: Yes (Other)
  Sender: FDA-Public Use
  Company Number: US-SANOFI-SYNTHELABO-A03200804473

PATIENT
  Sex: Male

DRUGS (3)
  1. ELOXATIN [Suspect]
     Indication: COLORECTAL CANCER STAGE III
     Route: 042
  2. LEUCOVORIN CALCIUM [Suspect]
     Indication: COLORECTAL CANCER STAGE III
     Route: 042
  3. FLUOROURACIL [Suspect]
     Indication: COLORECTAL CANCER STAGE III
     Route: 042

REACTIONS (3)
  - BONE MARROW FAILURE [None]
  - HEPATIC ENZYME INCREASED [None]
  - VENOOCCLUSIVE DISEASE [None]
